FAERS Safety Report 9676060 (Version 2)
Quarter: 2013Q4

REPORT INFORMATION
  Report Type: Spontaneous
  Country: TR (occurrence: TR)
  Receive Date: 20131107
  Receipt Date: 20131121
  Transmission Date: 20140711
  Serious: Yes (Hospitalization)
  Sender: FDA-Public Use
  Company Number: PHHY2013TR126374

PATIENT
  Age: 67 Year
  Sex: Female

DRUGS (2)
  1. OXCARBAZEPINE [Suspect]
     Indication: PARTIAL SEIZURES
     Dosage: 300 MG, BID
  2. HYDROCHLOROTHIAZIDE W/CILAZAPRIL [Concomitant]
     Indication: HYPERTENSION

REACTIONS (5)
  - Atrioventricular block complete [Recovered/Resolved]
  - Diastolic dysfunction [Recovered/Resolved]
  - Bradycardia [Recovered/Resolved]
  - Fatigue [Recovered/Resolved]
  - Headache [Unknown]
